FAERS Safety Report 10364476 (Version 3)
Quarter: 2015Q3

REPORT INFORMATION
  Report Type: Spontaneous
  Country: US (occurrence: US)
  Receive Date: 20140806
  Receipt Date: 20150805
  Transmission Date: 20151125
  Serious: No
  Sender: FDA-Public Use
  Company Number: US-AMGEN INC.-USASP2014056773

PATIENT
  Age: 2 Day
  Sex: Male

DRUGS (3)
  1. ENBREL [Suspect]
     Active Substance: ETANERCEPT
     Indication: EXPOSURE DURING BREAST FEEDING
     Dosage: 50 MG, QWK
     Route: 063
     Dates: start: 20140715, end: 201502
  2. FOLIC ACID. [Concomitant]
     Active Substance: FOLIC ACID
     Dosage: 1 MG, 2 PILLS
  3. BALSALAZIDE [Concomitant]
     Active Substance: BALSALAZIDE
     Dosage: 750 MG, 8 PILLS

REACTIONS (3)
  - Weight decreased [Unknown]
  - Feeding disorder of infancy or early childhood [Unknown]
  - Exposure during breast feeding [Not Recovered/Not Resolved]

NARRATIVE: CASE EVENT DATE: 20140715
